FAERS Safety Report 12977480 (Version 2)
Quarter: 2016Q4

REPORT INFORMATION
  Report Type: Spontaneous
  Country: IT (occurrence: IT)
  Receive Date: 20161128
  Receipt Date: 20161223
  Transmission Date: 20170207
  Serious: Yes (Hospitalization)
  Sender: FDA-Public Use
  Company Number: US-ASTRAZENECA-2016SF25915

PATIENT
  Age: 85 Year
  Sex: Female

DRUGS (4)
  1. BLOPRESID [Suspect]
     Active Substance: CANDESARTAN CILEXETIL\HYDROCHLOROTHIAZIDE
     Indication: PRODUCT USED FOR UNKNOWN INDICATION
     Dosage: UNK, 16/12.5 MG
     Route: 048
     Dates: start: 20111101, end: 20130705
  2. COMBIGAN [Suspect]
     Active Substance: BRIMONIDINE TARTRATE\TIMOLOL MALEATE
     Indication: PRODUCT USED FOR UNKNOWN INDICATION
     Dosage: UNK, EVERY DAY, 0.2%+0.5%
     Route: 047
     Dates: start: 20111101, end: 20130705
  3. TORVAST [Concomitant]
     Active Substance: ATORVASTATIN
     Dosage: 10 MG
     Route: 048
  4. METFORMINA TEVA [Concomitant]
     Active Substance: METFORMIN HYDROCHLORIDE
     Dosage: TEVA, 500 MG
     Route: 048

REACTIONS (2)
  - Hypotension [Recovered/Resolved]
  - Hyperhidrosis [Recovered/Resolved]

NARRATIVE: CASE EVENT DATE: 20130705
